FAERS Safety Report 23836354 (Version 2)
Quarter: 2024Q2

REPORT INFORMATION
  Report Type: Spontaneous
  Country: CL (occurrence: CL)
  Receive Date: 20240509
  Receipt Date: 20240510
  Transmission Date: 20240716
  Serious: Yes (Hospitalization)
  Sender: FDA-Public Use
  Company Number: CL-PFIZER INC-PV202400058292

PATIENT
  Age: 56 Year
  Sex: Female

DRUGS (1)
  1. BRAFTOVI [Suspect]
     Active Substance: ENCORAFENIB
     Dosage: UNK
     Dates: start: 202311

REACTIONS (5)
  - Jaundice [Unknown]
  - Pain [Not Recovered/Not Resolved]
  - Fatigue [Not Recovered/Not Resolved]
  - Insomnia [Not Recovered/Not Resolved]
  - Asthenia [Unknown]

NARRATIVE: CASE EVENT DATE: 20240506
